FAERS Safety Report 6265891-0 (Version None)
Quarter: 2009Q3

REPORT INFORMATION
  Report Type: 
  Country: None (occurrence: None)
  Receive Date: 20090713
  Receipt Date: 20090701
  Transmission Date: 20100115
  Serious: Yes (Hospitalization)
  Sender: FDA-Public Use
  Company Number: FR-GILEAD-2009-0022873

PATIENT
  Sex: Female

DRUGS (6)
  1. TRUVADA [Suspect]
     Indication: HIV INFECTION
     Dates: start: 20080617
  2. SUSTIVA [Suspect]
     Indication: HIV INFECTION
     Dates: start: 20080617
  3. FOSAMAX [Concomitant]
     Dates: start: 20080101
  4. SERETIDE [Concomitant]
     Dates: start: 20080101
  5. CALPEROS [Concomitant]
     Dates: start: 20080101
  6. VENTOLIN [Concomitant]
     Dates: start: 20080101

REACTIONS (2)
  - OSTEONECROSIS [None]
  - OSTEOPOROSIS [None]
